FAERS Safety Report 4352885-5 (Version None)
Quarter: 2004Q2

REPORT INFORMATION
  Report Type: 
  Country: None (occurrence: None)
  Receive Date: 20040504
  Receipt Date: 20040426
  Transmission Date: 20050107
  Serious: Yes (Death, Hospitalization)
  Sender: FDA-Public Use
  Company Number: SE-AMGEN-US074710

PATIENT
  Sex: Female

DRUGS (2)
  1. ENBREL [Suspect]
     Indication: RHEUMATOID ARTHRITIS
     Route: 058
  2. REMICADE [Suspect]
     Dates: start: 20010101, end: 20010101

REACTIONS (6)
  - ABDOMINAL NEOPLASM [None]
  - ANAEMIA [None]
  - HODGKIN'S DISEASE [None]
  - INFECTION [None]
  - PYREXIA [None]
  - THROMBOCYTOPENIA [None]
